FAERS Safety Report 16644007 (Version 1)
Quarter: 2019Q3

REPORT INFORMATION
  Report Type: Spontaneous
  Country: FR (occurrence: FR)
  Receive Date: 20190729
  Receipt Date: 20190729
  Transmission Date: 20191004
  Serious: Yes (Hospitalization, Other)
  Sender: FDA-Public Use
  Company Number: FR-JNJFOC-20190725650

PATIENT
  Age: 78 Year
  Sex: Female

DRUGS (11)
  1. SPASFON                            /00765801/ [Concomitant]
     Active Substance: PHLOROGLUCINOL\1,3,5-TRIMETHOXYBENZENE
  2. CYMBALTA [Concomitant]
     Active Substance: DULOXETINE HYDROCHLORIDE
  3. DUROGESIC [Suspect]
     Active Substance: FENTANYL
     Indication: PAIN PROPHYLAXIS
     Route: 062
     Dates: start: 20190610, end: 20190616
  4. ESOMEPRAZOLE. [Concomitant]
     Active Substance: ESOMEPRAZOLE MAGNESIUM
  5. ARAVA [Concomitant]
     Active Substance: LEFLUNOMIDE
  6. CALCIDOSE VITAMINE D [Concomitant]
     Active Substance: CALCIUM\CHOLECALCIFEROL
  7. DEBRIDAT                           /00465202/ [Concomitant]
     Active Substance: TRIMEBUTINE
  8. LYRICA [Concomitant]
     Active Substance: PREGABALIN
  9. FOSAVANCE [Concomitant]
     Active Substance: ALENDRONATE SODIUM\CHOLECALCIFEROL
  10. FENOFIBRATE. [Concomitant]
     Active Substance: FENOFIBRATE
  11. LEVOTHYROX [Concomitant]
     Active Substance: LEVOTHYROXINE

REACTIONS (4)
  - Device use error [Recovered/Resolved]
  - Confusional state [Recovered/Resolved]
  - Accidental overdose [Recovered/Resolved]
  - Erythema [Recovering/Resolving]

NARRATIVE: CASE EVENT DATE: 20190610
